FAERS Safety Report 24246428 (Version 2)
Quarter: 2024Q4

REPORT INFORMATION
  Report Type: Spontaneous
  Country: US (occurrence: US)
  Receive Date: 20240825
  Receipt Date: 20241015
  Transmission Date: 20250115
  Serious: Yes (Other)
  Sender: DR REDDYS
  Company Number: US-DRL-USA-SPO/USA/24/0012014

PATIENT
  Age: 57 Year
  Sex: Female

DRUGS (1)
  1. ACCUTANE [Suspect]
     Active Substance: ISOTRETINOIN
     Indication: Product used for unknown indication
     Route: 065

REACTIONS (13)
  - Atelectasis [Unknown]
  - Pulmonary oedema [Unknown]
  - Nausea [Unknown]
  - Axillary pain [Unknown]
  - Gingival swelling [Unknown]
  - Oedema peripheral [Unknown]
  - Asthenia [Unknown]
  - Dyspnoea [Unknown]
  - Full blood count abnormal [Unknown]
  - Product dose omission issue [Unknown]
  - Amenorrhoea [Unknown]
  - Toothache [Unknown]
  - Fatigue [Unknown]

NARRATIVE: CASE EVENT DATE: 20190404
